FAERS Safety Report 4779134-8 (Version None)
Quarter: 2005Q3

REPORT INFORMATION
  Report Type: 
  Country: None (occurrence: None)
  Receive Date: 20050923
  Receipt Date: 20050816
  Transmission Date: 20060218
  Serious: Yes (Other)
  Sender: FDA-Public Use
  Company Number: 8475

PATIENT
  Sex: Male

DRUGS (1)
  1. SEPTOCAINE [Suspect]
     Indication: HYPOAESTHESIA ORAL
     Dosage: 2 CARPLUES INJECTED

REACTIONS (2)
  - APTYALISM [None]
  - HYPOAESTHESIA ORAL [None]
